FAERS Safety Report 8149010 (Version 2)
Quarter: 2013Q2

REPORT INFORMATION
  Report Type: Spontaneous
  Country: US (occurrence: US)
  Receive Date: 20110922
  Receipt Date: 20130410
  Transmission Date: 20140414
  Serious: Yes (Other)
  Sender: FDA-Public Use
  Company Number: US-ASTRAZENECA-2011SE12567

PATIENT
  Sex: Female

DRUGS (14)
  1. SEROQUEL [Suspect]
     Indication: DEPRESSION
     Route: 048
     Dates: start: 200411
  2. SEROQUEL [Suspect]
     Indication: DEPRESSION
     Route: 048
     Dates: start: 20080211
  3. SEROQUEL [Suspect]
     Indication: DEPRESSION
     Route: 048
     Dates: start: 20080220
  4. COGENTIN [Concomitant]
     Indication: DEPRESSION
     Dates: start: 200411
  5. ZOLOFT [Concomitant]
     Indication: DEPRESSION
     Dates: start: 200411
  6. OXYCODONE W/APAP [Concomitant]
     Dates: start: 20071108
  7. TEMAZEPAM [Concomitant]
     Dates: start: 20071114
  8. ALPRAZOLAM [Concomitant]
     Dates: start: 20071114
  9. BUPROPION HCL [Concomitant]
     Dates: start: 20071114
  10. METHADONE HCL [Concomitant]
     Dates: start: 20071120
  11. OXCARBAZEPINE [Concomitant]
     Dates: start: 20071220
  12. HYDROMORPHONE [Concomitant]
     Dates: start: 20080122
  13. TRAZADONE [Concomitant]
     Dates: start: 20080211
  14. CYMBALTA [Concomitant]
     Dates: start: 20080211

REACTIONS (3)
  - Pancreatitis [Unknown]
  - Diabetic coma [Unknown]
  - Type 2 diabetes mellitus [Unknown]
